FAERS Safety Report 4436850-5 (Version None)
Quarter: 2004Q3

REPORT INFORMATION
  Report Type: 
  Country: None (occurrence: None)
  Receive Date: 20040830
  Receipt Date: 20040825
  Transmission Date: 20050211
  Serious: Yes (Hospitalization)
  Sender: FDA-Public Use
  Company Number: JP-ROCHE-378456

PATIENT
  Age: 74 Year
  Sex: Male

DRUGS (1)
  1. PANALDINE [Suspect]
     Route: 048
     Dates: start: 20040630, end: 20040722

REACTIONS (7)
  - ABDOMINAL DISTENSION [None]
  - BLOOD BILIRUBIN INCREASED [None]
  - BLOOD GLUCOSE INCREASED [None]
  - ERYTHEMA [None]
  - JAUNDICE [None]
  - LIVER DISORDER [None]
  - WEIGHT DECREASED [None]
